FAERS Safety Report 24836983 (Version 3)
Quarter: 2025Q1

REPORT INFORMATION
  Report Type: Spontaneous
  Country: JP (occurrence: JP)
  Receive Date: 20250113
  Receipt Date: 20250324
  Transmission Date: 20250409
  Serious: Yes (Hospitalization, Other)
  Sender: PURDUE
  Company Number: JP-shionogiph-202500000259

PATIENT
  Age: 60 Year
  Sex: Female
  Weight: 58 kg

DRUGS (9)
  1. OXYCONTIN [Suspect]
     Active Substance: OXYCODONE HYDROCHLORIDE
     Indication: Cancer pain
     Dosage: 40 MILLIGRAM, DAILY
     Route: 048
     Dates: start: 2016, end: 2018
  2. OXYCONTIN [Suspect]
     Active Substance: OXYCODONE HYDROCHLORIDE
     Indication: Abdominal pain
     Dosage: 40 MILLIGRAM, DAILY RESUME
     Route: 048
     Dates: start: 2018, end: 2018
  3. OXYCONTIN [Suspect]
     Active Substance: OXYCODONE HYDROCHLORIDE
     Dosage: 40 MILLIGRAM, Q12H, THE DOSE WAS INCREASED TO 80 MG/DAY
     Route: 048
     Dates: start: 20180409, end: 20200601
  4. OXYCODONE HYDROCHLORIDE [Suspect]
     Active Substance: OXYCODONE HYDROCHLORIDE
     Indication: Abdominal pain
     Route: 048
  5. OXYCODONE HYDROCHLORIDE [Suspect]
     Active Substance: OXYCODONE HYDROCHLORIDE
     Indication: Cancer pain
     Dosage: 20 MILLIGRAM, DAILY, 1-2 DOSES/DAY
     Route: 048
     Dates: start: 20180316, end: 20200601
  6. LEVOTHYROXINE SODIUM [Concomitant]
     Active Substance: LEVOTHYROXINE SODIUM
     Indication: Hypothyroidism
     Dosage: 75 MCG, DAILY
     Route: 048
  7. LEVOTHYROXINE SODIUM [Concomitant]
     Active Substance: LEVOTHYROXINE SODIUM
     Dosage: 50 MICROGRAM, Q12H
     Route: 048
  8. VONOPRAZAN FUMARATE [Concomitant]
     Active Substance: VONOPRAZAN FUMARATE
     Indication: Gastrooesophageal reflux disease
     Dosage: 10 MILLIGRAM, DAILY
     Route: 048
  9. MAGNESIUM OXIDE [Concomitant]
     Active Substance: MAGNESIUM OXIDE
     Indication: Constipation
     Dosage: 330 MILLIGRAM, Q8H
     Route: 048

REACTIONS (4)
  - Intestinal obstruction [Recovered/Resolved]
  - Constipation [Recovering/Resolving]
  - Abdominal pain [Recovering/Resolving]
  - Somnolence [Recovering/Resolving]

NARRATIVE: CASE EVENT DATE: 20180526
